FAERS Safety Report 4505356-7 (Version None)
Quarter: 2004Q4

REPORT INFORMATION
  Report Type: 
  Country: None (occurrence: None)
  Receive Date: 20041116
  Receipt Date: 20041103
  Transmission Date: 20050328
  Serious: Yes (Death, Other)
  Sender: FDA-Public Use
  Company Number: 2004_000089

PATIENT
  Age: 6 Year
  Sex: Male

DRUGS (6)
  1. DEPOCYT [Suspect]
     Indication: LYMPHOCYTIC LEUKAEMIA
     Dosage: 40 MG; X1; INTRATHECAL
     Route: 037
     Dates: start: 20041020, end: 20041020
  2. DEXAMETHASONE [Concomitant]
  3. THIOGUANINE [Concomitant]
  4. METHOTREXATE [Concomitant]
  5. VINCRISTINE [Concomitant]
  6. CYTARABINE [Concomitant]

REACTIONS (4)
  - COMA [None]
  - CONVULSION [None]
  - MENINGITIS PNEUMOCOCCAL [None]
  - VOMITING [None]
